FAERS Safety Report 21808909 (Version 1)
Quarter: 2023Q1

REPORT INFORMATION
  Report Type: Report from Study
  Country: US (occurrence: US)
  Receive Date: 20230103
  Receipt Date: 20230103
  Transmission Date: 20230417
  Serious: No
  Sender: FDA-Public Use
  Company Number: US-ABBVIE-4221225

PATIENT
  Age: 67 Year
  Sex: Female

DRUGS (1)
  1. HUMIRA [Suspect]
     Active Substance: ADALIMUMAB
     Indication: Uveitis
     Route: 058
     Dates: end: 2022

REACTIONS (7)
  - SARS-CoV-2 test positive [Recovering/Resolving]
  - Depression [Unknown]
  - COVID-19 [Recovered/Resolved]
  - Fatigue [Unknown]
  - Cough [Unknown]
  - Visual impairment [Unknown]
  - Insomnia [Unknown]

NARRATIVE: CASE EVENT DATE: 20221122
